FAERS Safety Report 7700570-1 (Version None)
Quarter: 2011Q3

REPORT INFORMATION
  Report Type: 
  Country: None (occurrence: None)
  Receive Date: 20110822
  Receipt Date: 20110817
  Transmission Date: 20111222
  Serious: Yes (Other)
  Sender: FDA-Public Use
  Company Number: CN-PFIZER INC-2011189772

PATIENT
  Age: 78 Year
  Sex: Male

DRUGS (3)
  1. BISOPROLOL [Concomitant]
     Indication: ESSENTIAL HYPERTENSION
     Dosage: 2.5 MG, 1X/DAY
     Route: 048
  2. AMLODIPINE BESYLATE [Suspect]
     Indication: ESSENTIAL HYPERTENSION
     Dosage: 5 MG, 1X/DAY
     Route: 048
  3. FOSINOPRIL SODIUM [Suspect]
     Indication: ESSENTIAL HYPERTENSION
     Dosage: 5 MG, 1X/DAY
     Route: 048

REACTIONS (7)
  - LEFT ATRIAL DILATATION [None]
  - FATIGUE [None]
  - WEIGHT DECREASED [None]
  - JAUNDICE [None]
  - LIVER INJURY [None]
  - GALLBLADDER ENLARGEMENT [None]
  - DECREASED APPETITE [None]
